FAERS Safety Report 25707613 (Version 1)
Quarter: 2025Q3

REPORT INFORMATION
  Report Type: Spontaneous
  Country: EU (occurrence: EU)
  Receive Date: 20250820
  Receipt Date: 20250820
  Transmission Date: 20251021
  Serious: Yes (Hospitalization)
  Sender: MYLAN
  Company Number: None

PATIENT
  Age: 13 Year
  Sex: Female
  Weight: 64 kg

DRUGS (1)
  1. ROPIVACAINE [Suspect]
     Active Substance: ROPIVACAINE
     Indication: Local anaesthesia
     Dates: start: 20250728, end: 20250728

REACTIONS (4)
  - Local anaesthetic systemic toxicity [Recovered/Resolved]
  - Diplopia [Recovered/Resolved]
  - Paraesthesia oral [Recovered/Resolved]
  - Tremor [Recovered/Resolved]

NARRATIVE: CASE EVENT DATE: 20250728
